FAERS Safety Report 14312261 (Version 1)
Quarter: 2017Q4

REPORT INFORMATION
  Report Type: Spontaneous
  Country: DE (occurrence: DE)
  Receive Date: 20171221
  Receipt Date: 20171221
  Transmission Date: 20180321
  Serious: Yes (Life-Threatening, Hospitalization, Other)
  Sender: FDA-Public Use
  Company Number: DE-CIPLA LTD.-2017DE28684

PATIENT

DRUGS (5)
  1. LOPEDIUM T [Interacting]
     Active Substance: LOPERAMIDE HYDROCHLORIDE
     Dosage: 1 DF, QD
     Route: 065
     Dates: start: 20170922, end: 20170923
  2. CARFILZOMIB [Interacting]
     Active Substance: CARFILZOMIB
     Indication: PLASMA CELL MYELOMA
     Dosage: 112 MG, 2. CYCLE
     Route: 065
     Dates: start: 20170919, end: 20170920
  3. ZOLEDRONIC ACID [Suspect]
     Active Substance: ZOLEDRONIC ACID
     Indication: PRODUCT USED FOR UNKNOWN INDICATION
     Dosage: UNK UKN, UNK
     Route: 065
     Dates: start: 20170919, end: 20171026
  4. LOPEDIUM T [Interacting]
     Active Substance: LOPERAMIDE HYDROCHLORIDE
     Dosage: 4 MG, BID
     Route: 048
     Dates: start: 20170919, end: 20170919
  5. DEXAMETHASONE. [Interacting]
     Active Substance: DEXAMETHASONE
     Indication: PLASMA CELL MYELOMA
     Dosage: UNK UKN, UNK, 2ND CYCLE
     Route: 065
     Dates: start: 20170912, end: 20170919

REACTIONS (8)
  - Abdominal distension [Not Recovered/Not Resolved]
  - Vomiting [Recovered/Resolved]
  - Constipation [Unknown]
  - Drug interaction [Recovered/Resolved]
  - Sleep disorder [Recovered/Resolved]
  - Abdominal pain [Recovered/Resolved]
  - Retching [Recovered/Resolved]
  - Nausea [Recovered/Resolved]

NARRATIVE: CASE EVENT DATE: 20170920
